FAERS Safety Report 24758526 (Version 3)
Quarter: 2025Q4

REPORT INFORMATION
  Report Type: Spontaneous
  Country: US (occurrence: None)
  Receive Date: 20241220
  Receipt Date: 20251030
  Transmission Date: 20260118
  Serious: No
  Sender: UCB
  Company Number: US-UCBSA-2024054582

PATIENT
  Age: 58 Year

DRUGS (2)
  1. BIMZELX [Suspect]
     Active Substance: BIMEKIZUMAB-BKZX
     Indication: Psoriasis
     Dosage: 320 MILLIGRAM, EV 4 WEEKS
  2. BIMZELX [Suspect]
     Active Substance: BIMEKIZUMAB-BKZX
     Dosage: 160 MILLIGRAM, EV 4 WEEKS (1 SYRINGE EVERY 4 WEEKS)

REACTIONS (8)
  - Injection site pain [Unknown]
  - Faeces soft [Unknown]
  - Burning sensation [Unknown]
  - Rhinorrhoea [Unknown]
  - Rash erythematous [Not Recovered/Not Resolved]
  - Pruritus [Recovered/Resolved]
  - Pain [Unknown]
  - Product use issue [Unknown]
